FAERS Safety Report 16463799 (Version 3)
Quarter: 2019Q3

REPORT INFORMATION
  Report Type: Spontaneous
  Country: US (occurrence: US)
  Receive Date: 20190621
  Receipt Date: 20190919
  Transmission Date: 20191004
  Serious: Yes (Other)
  Sender: FDA-Public Use
  Company Number: US-PFIZER INC-2019257541

PATIENT
  Age: 77 Year
  Sex: Female
  Weight: 52.62 kg

DRUGS (2)
  1. LOSARTAN. [Concomitant]
     Active Substance: LOSARTAN
     Indication: HYPERTENSION
     Dosage: 100 MG, 1X/DAY
  2. XELJANZ [Suspect]
     Active Substance: TOFACITINIB CITRATE
     Indication: RHEUMATOID ARTHRITIS
     Dosage: 5 MG, 2X/DAY
     Dates: start: 2019

REACTIONS (9)
  - Memory impairment [Unknown]
  - Pain [Unknown]
  - Upper limb fracture [Unknown]
  - Hypoacusis [Unknown]
  - Therapeutic response unexpected [Unknown]
  - Faeces soft [Not Recovered/Not Resolved]
  - Fall [Unknown]
  - Therapeutic product effect incomplete [Unknown]
  - Disturbance in attention [Unknown]

NARRATIVE: CASE EVENT DATE: 2019
